FAERS Safety Report 5729136-X (Version None)
Quarter: 2008Q2

REPORT INFORMATION
  Report Type: 
  Country: None (occurrence: None)
  Receive Date: 20080506
  Receipt Date: 20080411
  Transmission Date: 20081010
  Serious: Yes (Other)
  Sender: FDA-Public Use
  Company Number: CH-ROCHE-559132

PATIENT
  Age: 71 Year
  Sex: Female
  Weight: 93 kg

DRUGS (10)
  1. XENICAL [Suspect]
     Indication: DRUG USE FOR UNKNOWN INDICATION
     Route: 048
     Dates: start: 20040901, end: 20080218
  2. METFIN [Suspect]
     Indication: DRUG USE FOR UNKNOWN INDICATION
     Dosage: METFIN 100
     Route: 065
     Dates: start: 20070401, end: 20080225
  3. ACETAMINOPHEN [Suspect]
     Dosage: TAKEN SINCE THE PATIENT STOPPED XENICAL. FREQUENCY REPORTED AS 1.5 PER DAY
     Route: 065
     Dates: start: 20080219, end: 20080222
  4. RESYL PLUS [Concomitant]
     Dosage: TAKEN SINCE THE PATIENT STOPPED XENICAL.
     Dates: start: 20080219, end: 20080226
  5. RESYL PLUS [Concomitant]
     Dosage: TAKEN SINCE THE PATIENT STOPPED XENICAL.
     Dates: start: 20080219, end: 20080226
  6. ATACAND HCT [Concomitant]
     Dosage: STRENGTH 18/125
     Dates: start: 20020501
  7. ATACAND HCT [Concomitant]
     Dosage: STRENGTH 18/125
     Dates: start: 20020501
  8. ATENOLOL [Concomitant]
     Dosage: DRUG ATENOLOL MEPHA 100
     Dates: start: 20010401
  9. NIFEDICOR [Concomitant]
     Dosage: NIFEDICOR MATRIX 40
     Dates: start: 20020501
  10. ASPIRIN [Concomitant]
     Dosage: ASPIRIN CARDIO 100
     Dates: start: 20030301

REACTIONS (15)
  - ALANINE AMINOTRANSFERASE INCREASED [None]
  - ANOREXIA [None]
  - ASPARTATE AMINOTRANSFERASE INCREASED [None]
  - BLOOD ALKALINE PHOSPHATASE INCREASED [None]
  - BLOOD BILIRUBIN INCREASED [None]
  - CHROMATURIA [None]
  - COUGH [None]
  - FATIGUE [None]
  - GAMMA-GLUTAMYLTRANSFERASE INCREASED [None]
  - INFLUENZA [None]
  - LIVER FUNCTION TEST ABNORMAL [None]
  - OCULAR ICTERUS [None]
  - PAIN IN EXTREMITY [None]
  - PYREXIA [None]
  - YELLOW SKIN [None]
